FAERS Safety Report 24145977 (Version 2)
Quarter: 2024Q3

REPORT INFORMATION
  Report Type: Other
  Country: GB (occurrence: GB)
  Receive Date: 20240729
  Receipt Date: 20240808
  Transmission Date: 20241016
  Serious: Yes (Other)
  Sender: STRIDES
  Company Number: None

PATIENT
  Age: 11 Year
  Sex: Female

DRUGS (2)
  1. OXYBUTYNIN [Suspect]
     Active Substance: OXYBUTYNIN\OXYBUTYNIN CHLORIDE
     Indication: Adverse drug reaction
     Dosage: 2.5 MILLIGRAM, BID (TABLET) (2.5MG TWICE DAILY)
     Route: 065
     Dates: start: 20240624
  2. OXYBUTYNIN [Suspect]
     Active Substance: OXYBUTYNIN\OXYBUTYNIN CHLORIDE
     Indication: Hypertonic bladder

REACTIONS (2)
  - Photosensitivity reaction [Not Recovered/Not Resolved]
  - Hypohidrosis [Unknown]

NARRATIVE: CASE EVENT DATE: 20240718
